FAERS Safety Report 7198063-6 (Version None)
Quarter: 2010Q4

REPORT INFORMATION
  Report Type: 
  Country: None (occurrence: None)
  Receive Date: 20101213
  Receipt Date: 20101128
  Transmission Date: 20110411
  Serious: Yes (Other)
  Sender: FDA-Public Use
  Company Number: GB-DEXPHARM-20101932

PATIENT
  Age: 81 Year
  Sex: Male

DRUGS (3)
  1. OMEPRAZOLE [Suspect]
     Indication: OESOPHAGITIS
     Dosage: DOSE 20 MG SEP. DOSAGES/INTERVAL: 1 IN 1 DAY;
     Route: 058
  2. LANSOPRAZOLE [Suspect]
     Dosage: 30 MG MILLIGRAM(S) SEP. DOSAGES/INTERVAL 1 IN 1 DAY;
     Route: 058
  3. PANTOPRAZOLE [Suspect]
     Dosage: 30 MG MILLIGRAM(S) SEP. DOSAGES / INTERVAL 1 IN 1 DAY;
     Route: 058

REACTIONS (1)
  - LICHENOID KERATOSIS [None]
